FAERS Safety Report 4633051-2 (Version None)
Quarter: 2005Q2

REPORT INFORMATION
  Report Type: 
  Country: None (occurrence: None)
  Receive Date: 20050411
  Receipt Date: 20050411
  Transmission Date: 20051028
  Serious: Yes (Life-Threatening, Hospitalization, Disabling)
  Sender: FDA-Public Use
  Company Number: None

PATIENT
  Age: 35 Year
  Sex: Female
  Weight: 89.8122 kg

DRUGS (6)
  1. BEXTRA [Suspect]
     Indication: BUNION OPERATION
     Dosage: BID   ORAL
     Route: 048
     Dates: start: 20040401, end: 20040901
  2. CELEBREX [Suspect]
     Indication: BUNION OPERATION
     Dosage: BID  ORAL
     Route: 048
     Dates: start: 20040401, end: 20040901
  3. KETEX [Concomitant]
  4. SODIUM CHLORIDE [Concomitant]
  5. ALLEGRA [Concomitant]
  6. FLONASE [Concomitant]

REACTIONS (5)
  - ACUTE MYOCARDIAL INFARCTION [None]
  - BRONCHOPNEUMONIA [None]
  - CORONARY ARTERY OCCLUSION [None]
  - EJECTION FRACTION DECREASED [None]
  - SINUSITIS [None]
